FAERS Safety Report 16573403 (Version 1)
Quarter: 2019Q3

REPORT INFORMATION
  Report Type: Spontaneous
  Country: US (occurrence: US)
  Receive Date: 20190531
  Receipt Date: 20190531
  Transmission Date: 20191004
  Serious: Yes (Hospitalization)
  Sender: FDA-Public Use
  Company Number: None

PATIENT
  Age: 74 Year
  Sex: Male
  Weight: 114 kg

DRUGS (1)
  1. SULFAMETHOXAZOLE/TRIMETHOPRIM [Suspect]
     Active Substance: SULFAMETHOXAZOLE\TRIMETHOPRIM
     Indication: URINARY TRACT INFECTION
     Dosage: ?          OTHER DOSE:800/160MG;?
     Route: 048
     Dates: start: 20180911, end: 20180915

REACTIONS (11)
  - Urinary tract infection bacterial [None]
  - Hypertensive emergency [None]
  - Respiratory failure [None]
  - Uraemic encephalopathy [None]
  - Chronic obstructive pulmonary disease [None]
  - Drug resistance [None]
  - Enterobacter infection [None]
  - Constipation [None]
  - Haematuria [None]
  - Acute kidney injury [None]
  - Pulmonary oedema [None]

NARRATIVE: CASE EVENT DATE: 20180912
